FAERS Safety Report 25675679 (Version 1)
Quarter: 2025Q3

REPORT INFORMATION
  Report Type: Spontaneous
  Country: US (occurrence: US)
  Receive Date: 20250813
  Receipt Date: 20250813
  Transmission Date: 20251021
  Serious: No
  Sender: STALLERGENES
  Company Number: US-STALCOR-2025-AER-02027

PATIENT
  Sex: Female

DRUGS (5)
  1. PALFORZIA [Suspect]
     Active Substance: PEANUT
     Indication: Food allergy
     Dosage: 300MG (30 COUNT) MAINTENANCE
     Route: 048
  2. AUVI-Q [Concomitant]
     Active Substance: EPINEPHRINE
     Indication: Prophylaxis
  3. DIPHENHYDRAMINE HYDROCHLORIDE [Concomitant]
     Active Substance: DIPHENHYDRAMINE HYDROCHLORIDE
     Indication: Product used for unknown indication
  4. FLONASE ALLERGY RELIEF [Concomitant]
     Active Substance: FLUTICASONE PROPIONATE
     Indication: Product used for unknown indication
  5. SODIUM CHLORIDE [Concomitant]
     Active Substance: SODIUM CHLORIDE
     Indication: Product used for unknown indication

REACTIONS (2)
  - Illness [Recovered/Resolved]
  - Product dose omission issue [Recovered/Resolved]
